FAERS Safety Report 4728581-9 (Version None)
Quarter: 2005Q3

REPORT INFORMATION
  Report Type: 
  Country: None (occurrence: None)
  Receive Date: 20050727
  Receipt Date: 20050715
  Transmission Date: 20060218
  Serious: Yes (Other)
  Sender: FDA-Public Use
  Company Number: 2005092989

PATIENT
  Age: 72 Year
  Sex: Female
  Weight: 63.5036 kg

DRUGS (6)
  1. LIPITOR [Suspect]
     Indication: BLOOD CHOLESTEROL INCREASED
     Dosage: 10 MG (10 MG, 1 IN 1 D),ORAL
     Route: 048
     Dates: start: 20030827, end: 20050311
  2. ARICEPT [Suspect]
     Indication: AMNESIA
     Dosage: 10 MG (10 MG, 1IN 1 D), ORAL
     Route: 048
     Dates: start: 20050308, end: 20050514
  3. NAMENDA [Suspect]
     Indication: AMNESIA
     Dosage: 10 MG (10 MG, 1 IN 1 D), ORAL
     Route: 048
     Dates: start: 20050301, end: 20050524
  4. LEVOXYL [Concomitant]
  5. TOPROL (METOPROLOL) [Concomitant]
  6. ALTACE [Concomitant]

REACTIONS (10)
  - ABNORMAL DREAMS [None]
  - AMNESIA [None]
  - CONTUSION [None]
  - CRYING [None]
  - EYELID DISORDER [None]
  - FEELING ABNORMAL [None]
  - MUSCLE SPASMS [None]
  - MUSCULOSKELETAL DISORDER [None]
  - MYALGIA [None]
  - PAIN IN EXTREMITY [None]
